FAERS Safety Report 10150048 (Version 1)
Quarter: 2014Q2

REPORT INFORMATION
  Report Type: Spontaneous
  Country: CA (occurrence: CA)
  Receive Date: 20140502
  Receipt Date: 20140502
  Transmission Date: 20141212
  Serious: Yes (Other)
  Sender: FDA-Public Use
  Company Number: CA-PFIZER INC-2014117797

PATIENT
  Age: 54 Year
  Sex: Male

DRUGS (4)
  1. IBUPROFEN [Suspect]
     Dosage: UNK
     Route: 048
  2. BUCKLEY^S COMPLETE [Suspect]
     Dosage: 6 TEASPOONFUL
     Route: 048
  3. BUCKLEY^S COUGH CHEST CONGESTION [Suspect]
     Dosage: 6 TEASPOONFUL
     Route: 048
  4. BUCKLEY^S MIXTURE [Suspect]
     Dosage: 6 TEASPOONFUL
     Route: 048

REACTIONS (7)
  - Systemic lupus erythematosus [Not Recovered/Not Resolved]
  - Abdominal discomfort [Not Recovered/Not Resolved]
  - Arthritis [Not Recovered/Not Resolved]
  - Drug ineffective [Not Recovered/Not Resolved]
  - Dyspnoea [Not Recovered/Not Resolved]
  - Painful respiration [Not Recovered/Not Resolved]
  - Therapeutic response changed [Not Recovered/Not Resolved]
